FAERS Safety Report 17353856 (Version 3)
Quarter: 2020Q1

REPORT INFORMATION
  Report Type: Spontaneous
  Country: US (occurrence: US)
  Receive Date: 20200131
  Receipt Date: 20200226
  Transmission Date: 20200409
  Serious: No
  Sender: FDA-Public Use
  Company Number: US-MYLANLABS-2020M1008076

PATIENT
  Sex: Female
  Weight: 132 kg

DRUGS (2)
  1. WIXELA INHUB [Suspect]
     Active Substance: FLUTICASONE PROPIONATE\SALMETEROL XINAFOATE
     Dosage: UNK
  2. WIXELA INHUB [Suspect]
     Active Substance: FLUTICASONE PROPIONATE\SALMETEROL XINAFOATE
     Indication: ASTHMA
     Dosage: DOSE 1, TWICE DAILY
     Route: 055
     Dates: start: 20200116, end: 20200119

REACTIONS (7)
  - Product substitution issue [Unknown]
  - Fatigue [Recovered/Resolved]
  - Palpitations [Unknown]
  - Dyspnoea [Recovered/Resolved]
  - Heart rate increased [Recovered/Resolved]
  - Drug ineffective [Recovered/Resolved]
  - Nausea [Recovered/Resolved]
